FAERS Safety Report 7236164-4 (Version None)
Quarter: 2011Q1

REPORT INFORMATION
  Report Type: 
  Country: None (occurrence: None)
  Receive Date: 20110120
  Receipt Date: 20110110
  Transmission Date: 20110831
  Serious: Yes (Death, Hospitalization, Other)
  Sender: FDA-Public Use
  Company Number: US-CELGENEUS-163-21880-10092260

PATIENT
  Sex: Female

DRUGS (16)
  1. REVLIMID [Suspect]
     Indication: MULTIPLE MYELOMA
     Route: 048
     Dates: start: 20100608, end: 20100801
  2. ALLOPURINOL [Concomitant]
     Route: 048
     Dates: start: 20080101
  3. PANTOPRAZOLE [Concomitant]
     Route: 048
  4. SEVELAMER [Concomitant]
     Route: 048
  5. DILAUDID [Concomitant]
     Dosage: MULTIPLE DOSES
     Route: 065
  6. WARFARIN [Concomitant]
     Indication: ANTICOAGULANT THERAPY
     Route: 065
     Dates: end: 20100902
  7. FUROSEMIDE [Concomitant]
     Route: 051
  8. SPIRONOLACTONE [Concomitant]
     Route: 048
  9. DECADRON [Concomitant]
     Route: 048
     Dates: start: 20100301
  10. ZOFRAN [Concomitant]
     Indication: NAUSEA
     Route: 051
  11. DECADRON [Concomitant]
     Route: 048
     Dates: start: 20100902
  12. ZOFRAN [Concomitant]
     Indication: VOMITING
  13. AMLODIPINE [Concomitant]
     Route: 048
     Dates: start: 20080101
  14. ASA [Concomitant]
     Route: 048
     Dates: start: 20050301
  15. LATANOPROST [Concomitant]
     Route: 047
  16. FUROSEMIDE [Concomitant]
     Route: 048

REACTIONS (6)
  - SEPSIS [None]
  - ENCEPHALOPATHY [None]
  - INTERNATIONAL NORMALISED RATIO INCREASED [None]
  - THROMBOCYTOPENIA [None]
  - ANAEMIA [None]
  - ATRIAL FIBRILLATION [None]
